FAERS Safety Report 6540550-5 (Version None)
Quarter: 2010Q1

REPORT INFORMATION
  Report Type: 
  Country: None (occurrence: None)
  Receive Date: 20100118
  Receipt Date: 20100107
  Transmission Date: 20100710
  Serious: Yes (Hospitalization)
  Sender: FDA-Public Use
  Company Number: US-RANBAXY-2010US-30334

PATIENT

DRUGS (6)
  1. ISOTRETINOIN [Suspect]
     Indication: ACNE
     Dosage: 20 MG, BID
     Route: 048
     Dates: start: 20090824, end: 20090922
  2. ISOTRETINOIN [Suspect]
     Dosage: 20 MG, TID
     Route: 048
     Dates: start: 20090922, end: 20091226
  3. LEXAPRO [Suspect]
     Indication: DEPRESSION
     Route: 048
     Dates: start: 20090601, end: 20091216
  4. LEXAPRO [Suspect]
     Dosage: UNK
     Route: 048
     Dates: start: 20100105
  5. CELEXA [Suspect]
     Indication: DEPRESSION
     Dosage: UNK
     Route: 048
     Dates: start: 20091217, end: 20100105
  6. ULTRAM [Suspect]
     Indication: DRUG USE FOR UNKNOWN INDICATION
     Dosage: 50 MG, UNK
     Route: 048
     Dates: start: 20091226, end: 20091226

REACTIONS (5)
  - COMA [None]
  - CONVULSION [None]
  - DISORIENTATION [None]
  - OVERDOSE [None]
  - SUICIDE ATTEMPT [None]
